FAERS Safety Report 23515055 (Version 1)
Quarter: 2024Q1

REPORT INFORMATION
  Report Type: Spontaneous
  Country: DE (occurrence: DE)
  Receive Date: 20240212
  Receipt Date: 20240212
  Transmission Date: 20240409
  Serious: Yes (Hospitalization, Other)
  Sender: FDA-Public Use
  Company Number: None

PATIENT
  Age: 84 Year
  Sex: Male
  Weight: 110 kg

DRUGS (13)
  1. SPIRONOLACTONE [Suspect]
     Active Substance: SPIRONOLACTONE
     Indication: Product used for unknown indication
     Route: 065
     Dates: start: 20231123, end: 20231128
  2. NEBIVOLOL HYDROCHLORIDE [Concomitant]
     Active Substance: NEBIVOLOL HYDROCHLORIDE
     Indication: Cardiac failure chronic
     Route: 048
     Dates: start: 20231028
  3. OLODATEROL HYDROCHLORIDE\TIOTROPIUM BROMIDE MONOHYDRATE [Concomitant]
     Active Substance: OLODATEROL HYDROCHLORIDE\TIOTROPIUM BROMIDE MONOHYDRATE
     Indication: Asthma-chronic obstructive pulmonary disease overlap syndrome
     Dosage: 1-0-0, FORM STRENGTH: 2.5 MICROGRAMS/2.5 MICROGRAMS PER ACTUATION
     Dates: start: 2018
  4. SYMBICORT [Concomitant]
     Active Substance: BUDESONIDE\FORMOTEROL FUMARATE DIHYDRATE
     Indication: Asthma-chronic obstructive pulmonary disease overlap syndrome
     Dosage: 1-0-1, FORM STRENGTH: 160/4.5 MICROGRAMS/DOSE
     Route: 065
     Dates: start: 2018
  5. Novodigal mite [Concomitant]
     Indication: Product used for unknown indication
     Route: 065
  6. PREDNISOLONE [Concomitant]
     Active Substance: PREDNISOLONE
     Indication: Product used for unknown indication
     Route: 065
  7. SALBUHEXAL [Concomitant]
     Active Substance: ALBUTEROL
     Indication: Asthma-chronic obstructive pulmonary disease overlap syndrome
     Dosage: TIME INTERVAL: AS NECESSARY: 1-1-1 B.B., METERED AEROSOL 200 STROKE
     Route: 065
     Dates: start: 2018
  8. EDOXABAN TOSYLATE [Concomitant]
     Active Substance: EDOXABAN TOSYLATE
     Indication: Deep vein thrombosis
     Dosage: 1-0-0
     Route: 048
     Dates: start: 2019
  9. TORSEMIDE [Concomitant]
     Active Substance: TORSEMIDE
     Indication: Pulmonary oedema
     Dosage: 1-0-0
     Route: 048
     Dates: start: 20231028
  10. INFECTOSOOR [Concomitant]
     Indication: Oral candidiasis
     Dosage: 1-1-1-1
     Route: 048
     Dates: start: 20231028
  11. FERRO-SANOL DUODENAL [Concomitant]
     Active Substance: FERROUS GLYCINE SULFATE
     Indication: Iron deficiency anaemia
     Dosage: 1-0-0
     Route: 048
     Dates: start: 20231028
  12. RAMIPRIL [Concomitant]
     Active Substance: RAMIPRIL
     Indication: Hypertension
     Dosage: 1-0-0
     Route: 048
     Dates: start: 2010
  13. SPIRONOLACTONE [Suspect]
     Active Substance: SPIRONOLACTONE
     Indication: Cardiac failure chronic
     Dosage: 1-0-0
     Route: 048
     Dates: start: 20231028, end: 20231107

REACTIONS (13)
  - Anaphylactic shock [Recovering/Resolving]
  - Hypotonia [Unknown]
  - Skin exfoliation [Not Recovered/Not Resolved]
  - Rash erythematous [Recovered/Resolved]
  - Skin tightness [Unknown]
  - Pruritus [Recovered/Resolved]
  - Loss of personal independence in daily activities [Unknown]
  - Pain of skin [Unknown]
  - Skin warm [Recovered/Resolved]
  - Conjunctivitis allergic [Recovered/Resolved]
  - Mobility decreased [Unknown]
  - Urticaria [Recovering/Resolving]
  - Erythema [Recovering/Resolving]

NARRATIVE: CASE EVENT DATE: 20231029
